FAERS Safety Report 9765015 (Version 1)
Quarter: 2013Q4

REPORT INFORMATION
  Report Type: Spontaneous
  Country: US (occurrence: None)
  Receive Date: 20131216
  Receipt Date: 20131216
  Transmission Date: 20140711
  Serious: Yes (Disabling)
  Sender: FDA-Public Use
  Company Number: None

PATIENT
  Age: 48 None
  Sex: Female

DRUGS (11)
  1. VENLAFAXINE [Suspect]
     Indication: DEPRESSION
     Route: 048
     Dates: start: 20120326, end: 201204
  2. LYRICA [Concomitant]
  3. SINEMET [Concomitant]
  4. REMERON [Concomitant]
  5. KLONOPIN [Concomitant]
  6. TRAMADOL [Concomitant]
  7. NORCO [Concomitant]
  8. RESTASIS [Concomitant]
  9. MVI [Concomitant]
  10. VITAMIN D [Concomitant]
  11. IBUPROFEN [Concomitant]

REACTIONS (6)
  - Ataxia [None]
  - Confusional state [None]
  - Amnesia [None]
  - Myalgia [None]
  - Pain in extremity [None]
  - Muscle rigidity [None]
